FAERS Safety Report 19080525 (Version 1)
Quarter: 2021Q1

REPORT INFORMATION
  Report Type: Spontaneous
  Country: CA (occurrence: CA)
  Receive Date: 20210331
  Receipt Date: 20210331
  Transmission Date: 20210420
  Serious: Yes (Life-Threatening, Hospitalization)
  Sender: FDA-Public Use
  Company Number: CA-009507513-2103CAN008342

PATIENT
  Age: 63 Year
  Sex: Male
  Weight: 50 kg

DRUGS (2)
  1. KEYTRUDA [Suspect]
     Active Substance: PEMBROLIZUMAB
     Indication: LUNG ADENOCARCINOMA
     Dosage: 115 MILLIGRAM, 1 EVERY 4 WEEKS (DOSAGE FORM NOT SPECIFIED)
     Route: 042
  2. MORPHINE [Concomitant]
     Active Substance: MORPHINE
     Dosage: DOSAGE FORM: NOT SPECIFIED

REACTIONS (4)
  - Pneumococcal sepsis [Unknown]
  - Pneumonitis [Unknown]
  - Respiratory failure [Unknown]
  - Hypotension [Unknown]
